FAERS Safety Report 14854479 (Version 1)
Quarter: 2018Q2

REPORT INFORMATION
  Report Type: Spontaneous
  Country: JP (occurrence: JP)
  Receive Date: 20180507
  Receipt Date: 20180507
  Transmission Date: 20180711
  Serious: Yes (Other)
  Sender: FDA-Public Use
  Company Number: JP-PFIZER INC-2018175775

PATIENT
  Sex: Male

DRUGS (3)
  1. XALATAN [Suspect]
     Active Substance: LATANOPROST
     Indication: INTRAOCULAR PRESSURE INCREASED
     Dosage: UNK
     Route: 047
     Dates: start: 2017
  2. BRONUCK [Concomitant]
     Active Substance: BROMFENAC SODIUM
  3. XALATAN [Suspect]
     Active Substance: LATANOPROST
     Indication: PROPHYLAXIS

REACTIONS (3)
  - Visual impairment [Unknown]
  - Eye haemorrhage [Unknown]
  - Eye opacity [Unknown]

NARRATIVE: CASE EVENT DATE: 201709
